FAERS Safety Report 6372097-3 (Version None)
Quarter: 2009Q3

REPORT INFORMATION
  Report Type: 
  Country: None (occurrence: None)
  Receive Date: 20090917
  Receipt Date: 20090904
  Transmission Date: 20100115
  Serious: Yes (Other)
  Sender: FDA-Public Use
  Company Number: ADR18962009

PATIENT
  Sex: Female

DRUGS (4)
  1. SALBUTAMOL (MFR: UNKNOWN) [Suspect]
     Indication: ASTHMA
     Dosage: TRANSPLACENTAL
     Route: 064
  2. BUDESONIDE (1 DF) [Concomitant]
  3. FLUOXETINE [Concomitant]
  4. FORMOTEROL (1DF) [Concomitant]

REACTIONS (1)
  - SEPSIS [None]
